FAERS Safety Report 18895265 (Version 2)
Quarter: 2021Q1

REPORT INFORMATION
  Report Type: Report from Study
  Country: None (occurrence: US)
  Receive Date: 20210216
  Receipt Date: 20210217
  Transmission Date: 20210420
  Serious: Yes (Other)
  Sender: FDA-Public Use
  Company Number: US-ABBVIE-21K-163-3770679-00

PATIENT
  Sex: Male

DRUGS (1)
  1. HUMIRA [Suspect]
     Active Substance: ADALIMUMAB
     Indication: PRODUCT USED FOR UNKNOWN INDICATION
     Dosage: CITRATE FREE
     Route: 058

REACTIONS (8)
  - Condition aggravated [Recovering/Resolving]
  - Umbilical hernia [Unknown]
  - Intestinal obstruction [Recovering/Resolving]
  - Colectomy [Recovering/Resolving]
  - Ileostomy [Recovering/Resolving]
  - Fistula [Recovering/Resolving]
  - Postoperative adhesion [Recovering/Resolving]
  - Post procedural complication [Recovering/Resolving]
